FAERS Safety Report 8514013-1 (Version None)
Quarter: 2012Q2

REPORT INFORMATION
  Report Type: 
  Country: None (occurrence: None)
  Receive Date: 20120406
  Receipt Date: 20090203
  Transmission Date: 20120825
  Serious: Yes (Other)
  Sender: FDA-Public Use
  Company Number: PHEH2008US10195

PATIENT
  Sex: Male

DRUGS (8)
  1. ZOCOR [Concomitant]
  2. NEXIUM [Concomitant]
  3. PROCARDIA [Concomitant]
  4. GLUCOTROL [Concomitant]
  5. PRINIVIL [Concomitant]
  6. VASOTEC [Concomitant]
  7. TASIGNA [Suspect]
     Indication: CHRONIC MYELOID LEUKAEMIA
     Dosage: 400 MG, BID, ORAL
     Route: 048
     Dates: start: 20080514
  8. LASIX [Concomitant]

REACTIONS (1)
  - TYPE 1 DIABETES MELLITUS [None]
